FAERS Safety Report 8916125 (Version 2)
Quarter: 2012Q4

REPORT INFORMATION
  Report Type: Report from Study
  Country: US (occurrence: US)
  Receive Date: 20121120
  Receipt Date: 20121127
  Transmission Date: 20130627
  Serious: Yes (Hospitalization, Other)
  Sender: FDA-Public Use
  Company Number: US-ABBOTT-12P-163-1007927-00

PATIENT
  Age: 39 Year
  Sex: Female

DRUGS (4)
  1. HUMIRA [Suspect]
     Indication: RHEUMATOID ARTHRITIS
  2. METHOTREXATE [Concomitant]
     Indication: RHEUMATOID ARTHRITIS
     Dosage: 15mg every week
  3. MELOXICAM [Concomitant]
     Indication: RHEUMATOID ARTHRITIS
     Dosage: 50mg every day
  4. FOLIC ACID [Concomitant]
     Indication: RHEUMATOID ARTHRITIS
     Dosage: 1mg every day

REACTIONS (12)
  - Arthrodesis [Not Recovered/Not Resolved]
  - Knee arthroplasty [Unknown]
  - Arthrodesis [Unknown]
  - Joint arthroplasty [Unknown]
  - Drug ineffective [Unknown]
  - Musculoskeletal stiffness [Unknown]
  - Pain [Unknown]
  - Depression [Unknown]
  - Arthralgia [Unknown]
  - Anxiety [Unknown]
  - Sleep disorder [Unknown]
  - Depression [Unknown]
